FAERS Safety Report 20745549 (Version 1)
Quarter: 2022Q2

REPORT INFORMATION
  Report Type: Spontaneous
  Country: US (occurrence: None)
  Receive Date: 20220425
  Receipt Date: 20220425
  Transmission Date: 20220720
  Serious: Yes (Hospitalization)
  Sender: FDA-Public Use
  Company Number: None

PATIENT
  Age: 27 Year
  Sex: Female

DRUGS (12)
  1. HOMEOPATHICS [Suspect]
     Active Substance: HOMEOPATHICS
     Indication: Diarrhoea
     Dosage: OTHER QUANTITY : 10GTT;?FREQUENCY : 3 TIMES A DAY;?
  2. PREDNISONE [Concomitant]
     Active Substance: PREDNISONE
  3. CALCITRIOL [Concomitant]
     Active Substance: CALCITRIOL
  4. CHOLECALCIFEROL [Concomitant]
     Active Substance: CHOLECALCIFEROL
  5. INSULIN LISPRO [Concomitant]
     Active Substance: INSULIN LISPRO
  6. INSULIN LISPRO [Concomitant]
     Active Substance: INSULIN LISPRO
  7. INSULIN GLARGINE [Concomitant]
     Active Substance: INSULIN GLARGINE
  8. PANCRELIPASE [Concomitant]
     Active Substance: PANCRELIPASE
  9. ATROPINE\DIPHENOXYLATE [Concomitant]
     Active Substance: ATROPINE\DIPHENOXYLATE
  10. ENOXAPARIN [Concomitant]
     Active Substance: ENOXAPARIN
  11. LIGAPLEX II [Concomitant]
  12. Symibiotics Colostrum Chewables [Concomitant]

REACTIONS (2)
  - Anal incontinence [None]
  - Therapeutic product effect incomplete [None]

NARRATIVE: CASE EVENT DATE: 20220322
